FAERS Safety Report 24421292 (Version 1)
Quarter: 2024Q4

REPORT INFORMATION
  Report Type: Report from Study
  Country: US (occurrence: US)
  Receive Date: 20241010
  Receipt Date: 20241010
  Transmission Date: 20250115
  Serious: Yes (Hospitalization)
  Sender: ABBVIE
  Company Number: US-ABBVIE-5956644

PATIENT
  Sex: Female

DRUGS (2)
  1. SKYRIZI [Suspect]
     Active Substance: RISANKIZUMAB-RZAA
     Indication: Crohn^s disease
     Dosage: LAST ADMIN DATE-2024
     Route: 058
     Dates: start: 20240123
  2. REMICADE [Concomitant]
     Active Substance: INFLIXIMAB
     Indication: Crohn^s disease
     Dates: start: 20240924

REACTIONS (6)
  - Oesophagitis [Not Recovered/Not Resolved]
  - Nausea [Unknown]
  - Pain [Unknown]
  - Haemorrhage [Unknown]
  - Gastritis [Not Recovered/Not Resolved]
  - Pouchitis infective [Not Recovered/Not Resolved]

NARRATIVE: CASE EVENT DATE: 20240101
